FAERS Safety Report 17650340 (Version 1)
Quarter: 2020Q2

REPORT INFORMATION
  Report Type: Spontaneous
  Country: SE (occurrence: SE)
  Receive Date: 20200409
  Receipt Date: 20200409
  Transmission Date: 20200713
  Serious: Yes (Other)
  Sender: FDA-Public Use
  Company Number: SE-PFIZER INC-2020143120

PATIENT
  Age: 12 Year
  Sex: Female

DRUGS (1)
  1. SERTRALINE HCL [Suspect]
     Active Substance: SERTRALINE HYDROCHLORIDE
     Indication: DEPRESSION
     Dosage: 200 MG, DAILY
     Dates: start: 20190430, end: 20200308

REACTIONS (5)
  - Suicide attempt [Recovering/Resolving]
  - Depressive symptom [Recovering/Resolving]
  - Anxiety [Recovering/Resolving]
  - Withdrawal syndrome [Recovering/Resolving]
  - Visual impairment [Recovering/Resolving]

NARRATIVE: CASE EVENT DATE: 20190503
